FAERS Safety Report 5646713-5 (Version None)
Quarter: 2008Q1

REPORT INFORMATION
  Report Type: 
  Country: None (occurrence: None)
  Receive Date: 20080131
  Receipt Date: 20071129
  Transmission Date: 20080703
  Serious: Yes (Hospitalization)
  Sender: FDA-Public Use
  Company Number: 163-21880-07111661

PATIENT
  Age: 65 Year
  Sex: Female

DRUGS (2)
  1. REVLIMID [Suspect]
     Indication: CHRONIC LYMPHOCYTIC LEUKAEMIA
     Dosage: 10 MG, QD X21 DAYS OFF 7 DAYS, ORAL ; 25 MG, QD X21 DAYS OFF 7 DAYS, ORAL
     Route: 048
     Dates: start: 20070611
  2. REVLIMID [Suspect]
     Indication: CHRONIC LYMPHOCYTIC LEUKAEMIA
     Dosage: 10 MG, QD X21 DAYS OFF 7 DAYS, ORAL ; 25 MG, QD X21 DAYS OFF 7 DAYS, ORAL
     Route: 048
     Dates: start: 20070928

REACTIONS (1)
  - PULMONARY THROMBOSIS [None]
